FAERS Safety Report 17888878 (Version 4)
Quarter: 2020Q3

REPORT INFORMATION
  Report Type: Spontaneous
  Country: IE (occurrence: AU)
  Receive Date: 20200612
  Receipt Date: 20200811
  Transmission Date: 20201103
  Serious: Yes (Other)
  Sender: FDA-Public Use
  Company Number: AU-SHIRE-AU202018761

PATIENT

DRUGS (3)
  1. VYVANSE [Suspect]
     Active Substance: LISDEXAMFETAMINE DIMESYLATE
     Dosage: 40 MILLIGRAM, UNKNOWN
     Route: 065
  2. VYVANSE [Suspect]
     Active Substance: LISDEXAMFETAMINE DIMESYLATE
     Indication: ATTENTION DEFICIT HYPERACTIVITY DISORDER
     Dosage: 30 MILLIGRAM, UNKNOWN
     Route: 065
  3. VYVANSE [Suspect]
     Active Substance: LISDEXAMFETAMINE DIMESYLATE
     Dosage: 30 MILLIGRAM, UNKNOWN
     Route: 065
     Dates: start: 20181211, end: 20200618

REACTIONS (6)
  - Intentional self-injury [Unknown]
  - Poor quality product administered [Unknown]
  - Intentional product use issue [Unknown]
  - Emotional disorder [Unknown]
  - Condition aggravated [Unknown]
  - Product physical issue [Recovering/Resolving]

NARRATIVE: CASE EVENT DATE: 2020
